FAERS Safety Report 7741561-4 (Version None)
Quarter: 2011Q3

REPORT INFORMATION
  Report Type: 
  Country: None (occurrence: None)
  Receive Date: 20110909
  Receipt Date: 20110831
  Transmission Date: 20111222
  Serious: Yes (Other)
  Sender: FDA-Public Use
  Company Number: FR-ASTRAZENECA-2011SE52603

PATIENT
  Age: 47 Year
  Sex: Male

DRUGS (7)
  1. NEXIUM [Suspect]
     Route: 048
     Dates: start: 20110605, end: 20110617
  2. VISIPAQUE [Suspect]
     Dosage: ONCE/SINGLE ADMINISTRATION
     Route: 042
     Dates: start: 20110608, end: 20110608
  3. ESIDRIX [Suspect]
     Route: 048
     Dates: start: 20110605, end: 20110616
  4. NOVORAPID [Concomitant]
     Indication: DIABETES MELLITUS
  5. LANTUS [Concomitant]
     Indication: DIABETES MELLITUS
  6. FUROSEMIDE [Suspect]
     Route: 048
     Dates: start: 20110605, end: 20110616
  7. AMLODIPINE [Suspect]
     Route: 048
     Dates: start: 20110605, end: 20110617

REACTIONS (3)
  - PRURITUS [None]
  - EOSINOPHILIA [None]
  - RASH [None]
